FAERS Safety Report 13889038 (Version 1)
Quarter: 2017Q3

REPORT INFORMATION
  Report Type: Spontaneous
  Country: US (occurrence: US)
  Receive Date: 20170822
  Receipt Date: 20170822
  Transmission Date: 20171127
  Serious: No
  Sender: FDA-Public Use
  Company Number: US-ROCHE-1155743

PATIENT
  Sex: Female

DRUGS (3)
  1. IMURAN [Concomitant]
     Active Substance: AZATHIOPRINE
  2. ACTEMRA [Suspect]
     Active Substance: TOCILIZUMAB
     Indication: RHEUMATOID ARTHRITIS
     Route: 042
     Dates: start: 20080101, end: 2011
  3. AZULFIDINE [Concomitant]
     Active Substance: SULFASALAZINE

REACTIONS (6)
  - Gastric ulcer [Unknown]
  - Abdominal pain upper [Unknown]
  - Volvulus [Unknown]
  - Sinusitis [Unknown]
  - Diarrhoea [Unknown]
  - Pain [Unknown]
